FAERS Safety Report 14957658 (Version 1)
Quarter: 2018Q2

REPORT INFORMATION
  Report Type: Spontaneous
  Country: US (occurrence: US)
  Receive Date: 20180531
  Receipt Date: 20180531
  Transmission Date: 20180711
  Serious: No
  Sender: FDA-Public Use
  Company Number: US-ARBOR PHARMACEUTICALS, LLC-US-2017ARB000799

PATIENT

DRUGS (2)
  1. HORIZANT [Suspect]
     Active Substance: GABAPENTIN ENACARBIL
     Indication: RESTLESS LEGS SYNDROME
     Dosage: 1 DF, QD, AT 6:00 PM
     Route: 048
     Dates: start: 2017, end: 2017
  2. HORIZANT [Suspect]
     Active Substance: GABAPENTIN ENACARBIL
     Dosage: 1 DF, BID, AT 6:00 PM AND 11:00 PM
     Route: 048
     Dates: start: 2017

REACTIONS (4)
  - Incorrect dose administered [Unknown]
  - Restlessness [Recovering/Resolving]
  - Sleep disorder [Recovering/Resolving]
  - Drug ineffective [Unknown]

NARRATIVE: CASE EVENT DATE: 2017
